FAERS Safety Report 25668183 (Version 1)
Quarter: 2025Q3

REPORT INFORMATION
  Report Type: Spontaneous
  Country: US (occurrence: US)
  Receive Date: 20250812
  Receipt Date: 20250812
  Transmission Date: 20251020
  Serious: No
  Sender: AMGEN
  Company Number: US-AMGEN-USASP2025157251

PATIENT
  Sex: Female

DRUGS (1)
  1. REPATHA [Suspect]
     Active Substance: EVOLOCUMAB
     Indication: Product used for unknown indication
     Route: 065
     Dates: start: 2018

REACTIONS (5)
  - Device difficult to use [Unknown]
  - Arterial stiffness [Unknown]
  - Arteriosclerosis [Unknown]
  - Illness [Unknown]
  - Therapy interrupted [Unknown]
